FAERS Safety Report 21625783 (Version 1)
Quarter: 2022Q4

REPORT INFORMATION
  Report Type: Report from Study
  Country: US (occurrence: US)
  Receive Date: 20221122
  Receipt Date: 20221122
  Transmission Date: 20230113
  Serious: Yes (Hospitalization)
  Sender: FDA-Public Use
  Company Number: US-RECORDATI-2022005216

PATIENT

DRUGS (8)
  1. SIGNIFOR [Suspect]
     Active Substance: PASIREOTIDE DIASPARTATE
     Indication: Pituitary-dependent Cushing^s syndrome
     Dosage: 0.6 MILLIGRAM, BID
     Route: 058
     Dates: start: 20220624, end: 202208
  2. SIGNIFOR [Suspect]
     Active Substance: PASIREOTIDE DIASPARTATE
     Dosage: 0.6 MILLIGRAM, BID
     Route: 058
     Dates: start: 202209, end: 2022
  3. SIGNIFOR [Suspect]
     Active Substance: PASIREOTIDE DIASPARTATE
     Dosage: 0.3 MILLIGRAM, QD
     Route: 058
     Dates: start: 202210, end: 2022
  4. HYDROCORTISONE [Concomitant]
     Active Substance: HYDROCORTISONE
     Indication: Product used for unknown indication
     Dosage: 5 MILLIGRAM IN THE MORNING AND 10 MILLIGRAM IN THE
  5. LEVOTHYROXINE [Concomitant]
     Active Substance: LEVOTHYROXINE
     Indication: Hypothyroidism
     Dosage: 137 MICROGRAM
  6. FLUDROCORTISONE [Concomitant]
     Active Substance: FLUDROCORTISONE
     Indication: Pituitary-dependent Cushing^s syndrome
     Dosage: 0.1 MILLIGRAM, QD
  7. JUNEL FE 1/20 [Concomitant]
     Active Substance: ETHINYL ESTRADIOL\NORETHINDRONE ACETATE
     Indication: Contraception
     Dosage: UNK, QD
  8. CABERGOLINE [Concomitant]
     Active Substance: CABERGOLINE
     Indication: Pituitary-dependent Cushing^s syndrome
     Dosage: 0.5 MILLIGRAM, BIW

REACTIONS (7)
  - Influenza [Not Recovered/Not Resolved]
  - Vomiting [Recovering/Resolving]
  - Nausea [Recovering/Resolving]
  - Diarrhoea [Recovering/Resolving]
  - Nausea [Unknown]
  - Vomiting [Unknown]
  - Off label use [Recovered/Resolved]

NARRATIVE: CASE EVENT DATE: 20220624
